FAERS Safety Report 9922962 (Version 1)
Quarter: 2014Q1

REPORT INFORMATION
  Report Type: Spontaneous
  Country: US (occurrence: US)
  Receive Date: 20140225
  Receipt Date: 20140225
  Transmission Date: 20141002
  Serious: No
  Sender: FDA-Public Use
  Company Number: US-B.I. PHARMACEUTICALS,INC./RIDGEFIELD-2014-BI-07365BP

PATIENT
  Age: 59 Year
  Sex: Male

DRUGS (13)
  1. COMBIVENT [Suspect]
     Indication: CHRONIC OBSTRUCTIVE PULMONARY DISEASE
     Dosage: DOSE PER APPLICATION: 20 MCG / 100 MCG; DAILY DOSE: 80 MCG/ 400 MCG
     Route: 055
     Dates: start: 201312
  2. ADVAIR [Concomitant]
     Route: 055
  3. SPIRIVA [Concomitant]
     Dosage: 18 MCG
     Route: 055
  4. ALLEGRA D [Concomitant]
     Route: 048
  5. OXYCODONE [Concomitant]
     Route: 048
  6. MORPHINE SULFATE [Concomitant]
     Route: 048
  7. LEVOTHYROXINE [Concomitant]
     Route: 048
  8. CLONAZEPAM [Concomitant]
     Route: 048
  9. SERTRALINE [Concomitant]
     Route: 048
  10. FUROSEMIDE [Concomitant]
     Route: 048
  11. METOPROLOL TARTRATE [Concomitant]
     Route: 048
  12. DICLOFENAC [Concomitant]
     Route: 048
  13. MIRALAX [Concomitant]
     Route: 048

REACTIONS (2)
  - Dyspnoea [Not Recovered/Not Resolved]
  - Pulmonary congestion [Not Recovered/Not Resolved]
